FAERS Safety Report 9406884 (Version 1)
Quarter: 2013Q3

REPORT INFORMATION
  Report Type: Spontaneous
  Country: US (occurrence: US)
  Receive Date: 20130718
  Receipt Date: 20130718
  Transmission Date: 20140515
  Serious: Yes (Other)
  Sender: FDA-Public Use
  Company Number: PHEH2013US015081

PATIENT
  Age: 46 Year
  Sex: Female

DRUGS (12)
  1. FANAPT [Suspect]
     Dosage: UNK UKN, UNK
  2. NICOTINE [Suspect]
     Indication: SMOKING CESSATION THERAPY
     Dosage: 7 MG, UNK
     Route: 062
  3. NICODERM CQ [Suspect]
     Indication: SMOKING CESSATION THERAPY
     Dosage: 7 MG, UNK
     Route: 062
  4. NICODERM CQ [Suspect]
     Dosage: 14 MG, UNK
     Route: 062
  5. NICODERM CQ [Suspect]
     Dosage: 7 MG, UNK
     Route: 062
  6. CLOZAPINE [Concomitant]
     Dosage: UNK UKN, UNK
  7. ACIDO VALPROICO//VALPROATE SEMISODIUM [Concomitant]
     Dosage: UNK UKN, UNK
  8. OLANZAPINE [Concomitant]
     Dosage: UNK UKN, UNK
  9. DOCUSATE SODIUM [Concomitant]
     Dosage: UNK UKN, UNK
  10. CALCIUM CITRATE [Concomitant]
     Dosage: UNK UKN, UNK
  11. OMEGA 3 [Concomitant]
     Dosage: UNK UKN, UNK
  12. ACIDOPHILUS [Concomitant]
     Dosage: UNK UKN, UNK

REACTIONS (3)
  - Cardiac flutter [Recovered/Resolved]
  - Heart rate increased [Recovered/Resolved]
  - Palpitations [Recovered/Resolved]
